FAERS Safety Report 23574658 (Version 1)
Quarter: 2024Q1

REPORT INFORMATION
  Report Type: Spontaneous
  Country: US (occurrence: US)
  Receive Date: 20240228
  Receipt Date: 20240228
  Transmission Date: 20240409
  Serious: No
  Sender: FDA-Public Use
  Company Number: US-BEIGENE-BGN-2024-002631

PATIENT

DRUGS (1)
  1. BRUKINSA [Suspect]
     Active Substance: ZANUBRUTINIB
     Indication: Waldenstrom^s macroglobulinaemia
     Dosage: GRADUALLY WITH 2, 3, 4 CAPSULES
     Route: 048

REACTIONS (2)
  - Pigmentation disorder [Unknown]
  - Diarrhoea [Unknown]
